FAERS Safety Report 7717894-4 (Version None)
Quarter: 2011Q3

REPORT INFORMATION
  Report Type: 
  Country: None (occurrence: None)
  Receive Date: 20110824
  Receipt Date: 20110815
  Transmission Date: 20111222
  Serious: Yes (Other)
  Sender: FDA-Public Use
  Company Number: B0740994A

PATIENT
  Age: 9 Year
  Sex: Female

DRUGS (6)
  1. PULMOZYME [Concomitant]
  2. FLUTICASONE PROPIONATE [Suspect]
     Indication: ASTHMA
     Dosage: TWICE PER DAY / ORAL
     Route: 048
     Dates: start: 20090602, end: 20090925
  3. AZITHROMYCIN [Concomitant]
  4. ALBUTEROL SULFATE AUTOHALER [Concomitant]
  5. FLUCONAZOLE [Suspect]
     Indication: VULVOVAGINAL CANDIDIASIS
     Dosage: 100 MG / ORAL
     Route: 048
     Dates: start: 20090721, end: 20090726
  6. PROPRANOLOL HCL [Concomitant]

REACTIONS (6)
  - CUSHING'S SYNDROME [None]
  - IATROGENIC INJURY [None]
  - ADRENAL INSUFFICIENCY [None]
  - CYSTIC FIBROSIS RELATED DIABETES [None]
  - VULVOVAGINAL CANDIDIASIS [None]
  - DRUG INTERACTION [None]
